FAERS Safety Report 8335187-1 (Version None)
Quarter: 2012Q2

REPORT INFORMATION
  Report Type: 
  Country: None (occurrence: None)
  Receive Date: 20120503
  Receipt Date: 20120427
  Transmission Date: 20120825
  Serious: No
  Sender: FDA-Public Use
  Company Number: US-JNJFOC-20120401434

PATIENT
  Sex: Male
  Weight: 70.31 kg

DRUGS (12)
  1. DURAGESIC-100 [Suspect]
     Route: 062
     Dates: start: 20120201
  2. LITHIUM CARBONATE [Concomitant]
     Indication: BIPOLAR DISORDER
     Route: 048
  3. FENTANYL CITRATE [Suspect]
     Indication: PRODUCT USED FOR UNKNOWN INDICATION
     Route: 062
  4. VALIUM [Concomitant]
     Indication: ATTENTION DEFICIT/HYPERACTIVITY DISORDER
     Route: 048
  5. LITHIUM CARBONATE [Concomitant]
     Indication: ATTENTION DEFICIT/HYPERACTIVITY DISORDER
     Route: 048
  6. LYRICA [Concomitant]
     Route: 048
  7. DURAGESIC-100 [Suspect]
     Route: 062
     Dates: start: 20120201
  8. DURAGESIC-100 [Suspect]
     Indication: NECK PAIN
     Route: 062
     Dates: start: 20111101
  9. DURAGESIC-100 [Suspect]
     Indication: BACK PAIN
     Route: 062
     Dates: start: 20111101
  10. VALIUM [Concomitant]
     Indication: BIPOLAR DISORDER
     Route: 048
  11. ZANTAC [Concomitant]
     Route: 048
  12. OXYCODONE HCL [Concomitant]
     Route: 048

REACTIONS (4)
  - DRUG EFFECT DECREASED [None]
  - PRODUCT QUALITY ISSUE [None]
  - WRONG TECHNIQUE IN DRUG USAGE PROCESS [None]
  - WITHDRAWAL SYNDROME [None]
